FAERS Safety Report 9076023 (Version 2)
Quarter: 2013Q1

REPORT INFORMATION
  Report Type: Spontaneous
  Country: JP (occurrence: JP)
  Receive Date: 20130131
  Receipt Date: 20130219
  Transmission Date: 20140127
  Serious: Yes (Hospitalization, Other)
  Sender: FDA-Public Use
  Company Number: JP-ROCHE-1169278

PATIENT
  Age: 78 None
  Sex: Female
  Weight: 40 kg

DRUGS (15)
  1. ACTEMRA [Suspect]
     Indication: RHEUMATOID ARTHRITIS
     Dosage: LAST DOSE PRIOR TO SAE 14/NOV/2012.
     Route: 041
     Dates: start: 20120502, end: 20121114
  2. PREDONINE [Concomitant]
     Indication: RHEUMATOID ARTHRITIS
     Route: 065
     Dates: start: 20110314, end: 20111120
  3. PREDONINE [Concomitant]
     Indication: RHEUMATOID ARTHRITIS
     Route: 065
     Dates: start: 20111121, end: 20120624
  4. PREDONINE [Concomitant]
     Indication: RHEUMATOID ARTHRITIS
     Route: 065
     Dates: start: 20120625, end: 20120819
  5. PREDONINE [Concomitant]
     Indication: RHEUMATOID ARTHRITIS
     Route: 065
     Dates: start: 20120820, end: 20120918
  6. PREDONINE [Concomitant]
     Indication: RHEUMATOID ARTHRITIS
     Route: 065
     Dates: start: 20120919, end: 20121016
  7. PREDONINE [Concomitant]
     Indication: RHEUMATOID ARTHRITIS
     Route: 065
     Dates: start: 20121017
  8. RHEUMATREX [Concomitant]
     Indication: RHEUMATOID ARTHRITIS
     Route: 065
     Dates: start: 20121017, end: 20121129
  9. TAKEPRON [Concomitant]
     Indication: PROPHYLAXIS
     Route: 048
  10. EDIROL [Concomitant]
     Route: 048
     Dates: start: 20120411, end: 20121129
  11. MUCOSOLVAN [Concomitant]
     Route: 048
     Dates: end: 20121129
  12. CELECOX [Concomitant]
     Indication: RHEUMATOID ARTHRITIS
     Route: 048
     Dates: end: 20121129
  13. URSO [Concomitant]
     Indication: BILIARY CIRRHOSIS PRIMARY
     Route: 048
     Dates: end: 20121129
  14. FOLIAMIN [Concomitant]
     Indication: PROPHYLAXIS
     Route: 048
     Dates: start: 20121017, end: 20121129
  15. METHOTREXATE [Concomitant]

REACTIONS (3)
  - Pneumocystis jirovecii pneumonia [Recovered/Resolved]
  - Interstitial lung disease [Recovered/Resolved]
  - Renal impairment [Recovered/Resolved]
